FAERS Safety Report 16344209 (Version 1)
Quarter: 2019Q2

REPORT INFORMATION
  Report Type: Spontaneous
  Country: PL (occurrence: PL)
  Receive Date: 20190522
  Receipt Date: 20190522
  Transmission Date: 20190711
  Serious: Yes (Death, Hospitalization)
  Sender: FDA-Public Use
  Company Number: PL-PFIZER INC-2019213772

PATIENT
  Sex: Male
  Weight: 75 kg

DRUGS (15)
  1. THIETHYLPERAZINE MALEATE [Concomitant]
     Active Substance: THIETHYLPERAZINE MALEATE
     Dosage: 6.5 MG, UNK
     Dates: start: 201810
  2. VELETRI [Suspect]
     Active Substance: EPOPROSTENOL
     Indication: PULMONARY ARTERIAL HYPERTENSION
     Dosage: UNK 56 NG/KG
     Route: 042
     Dates: start: 201612, end: 20190324
  3. TORASEMIDE [Concomitant]
     Active Substance: TORSEMIDE
     Indication: HEART DISEASE CONGENITAL
     Dosage: 100 MG, 1X/DAY
     Route: 048
     Dates: start: 201710
  4. FUROSEMIDE. [Concomitant]
     Active Substance: FUROSEMIDE
     Dosage: UNK
     Route: 042
     Dates: end: 20190324
  5. MIRTAZAPINE. [Concomitant]
     Active Substance: MIRTAZAPINE
     Dosage: 45 MG, UNK
     Dates: start: 201810
  6. IVABRADINE [Concomitant]
     Active Substance: IVABRADINE
     Dosage: 7.5 MG, 2X/DAY
     Route: 048
     Dates: start: 201710
  7. ALDACTONE [Concomitant]
     Active Substance: SPIRONOLACTONE
     Dosage: 50 MG, UNK
     Route: 042
     Dates: start: 201810
  8. BOSENTAN. [Suspect]
     Active Substance: BOSENTAN
     Indication: PULMONARY ARTERIAL HYPERTENSION
     Dosage: UNK
     Route: 048
     Dates: start: 2013
  9. FUROSEMIDE. [Concomitant]
     Active Substance: FUROSEMIDE
     Indication: HEART DISEASE CONGENITAL
     Dosage: 60 MG, 3X/DAY
     Route: 042
     Dates: start: 201810
  10. REMODULIN [Concomitant]
     Active Substance: TREPROSTINIL
     Indication: PULMONARY ARTERIAL HYPERTENSION
     Dosage: UNK 60 NG/KG
     Dates: start: 2016
  11. HYGROTON [Concomitant]
     Active Substance: CHLORTHALIDONE
     Indication: HEART DISEASE CONGENITAL
     Dosage: 50 MG, 1X/DAY
     Route: 048
     Dates: start: 201810
  12. ALLOPURINOL. [Concomitant]
     Active Substance: ALLOPURINOL
     Dosage: 300 MG, UNK
     Route: 048
     Dates: start: 2015
  13. SILDENAFIL CITRATE. [Suspect]
     Active Substance: SILDENAFIL CITRATE
     Indication: PULMONARY ARTERIAL HYPERTENSION
     Dosage: 20 MG, 1X/DAY
     Route: 048
     Dates: start: 2013, end: 20190324
  14. OPSUMIT [Suspect]
     Active Substance: MACITENTAN
     Indication: PULMONARY ARTERIAL HYPERTENSION
     Dosage: 10 MG, 1X/DAY
     Route: 048
     Dates: start: 20130228, end: 20190324
  15. SPIRONOL [Concomitant]
     Active Substance: SPIRONOLACTONE
     Indication: HEART DISEASE CONGENITAL
     Dosage: 50 MG, 1X/DAY
     Route: 042
     Dates: start: 201710

REACTIONS (19)
  - Cyanosis central [Fatal]
  - Oxygen saturation decreased [Fatal]
  - Right ventricular failure [Fatal]
  - Pulmonary oedema [Fatal]
  - Dyspnoea [Fatal]
  - Cardiac failure chronic [Fatal]
  - Cyanosis [Fatal]
  - Concomitant disease aggravated [Fatal]
  - Weight increased [Fatal]
  - Pyrexia [Fatal]
  - Respiratory arrest [Fatal]
  - Pneumonia [Fatal]
  - Tachypnoea [Fatal]
  - Exercise tolerance decreased [Fatal]
  - Pulseless electrical activity [Fatal]
  - Abdominal distension [Fatal]
  - Hypokalaemia [Fatal]
  - Haemoptysis [Fatal]
  - Sinus tachycardia [Fatal]

NARRATIVE: CASE EVENT DATE: 201803
